FAERS Safety Report 17693384 (Version 5)
Quarter: 2020Q2

REPORT INFORMATION
  Report Type: Report from Study
  Country: CH (occurrence: CH)
  Receive Date: 20200422
  Receipt Date: 20200610
  Transmission Date: 20200714
  Serious: Yes (Hospitalization, Other)
  Sender: FDA-Public Use
  Company Number: CH-PFIZER INC-2020145592

PATIENT
  Age: 76 Year
  Sex: Male
  Weight: 79 kg

DRUGS (1)
  1. TAFAMIDIS [Suspect]
     Active Substance: TAFAMIDIS MEGLUMINE
     Indication: AMYLOIDOSIS
     Dosage: 61 MG, DAILY (1-0-0)
     Dates: start: 20200108

REACTIONS (12)
  - Corticobasal degeneration [Unknown]
  - Hepatic function abnormal [Not Recovered/Not Resolved]
  - General physical health deterioration [Unknown]
  - Peripheral venous disease [Unknown]
  - Renal failure [Unknown]
  - Cardiac failure [Unknown]
  - Dry skin [Unknown]
  - Hepatic cirrhosis [Unknown]
  - Malnutrition [Unknown]
  - Renal impairment [Recovering/Resolving]
  - Mobility decreased [Unknown]
  - Depression [Unknown]

NARRATIVE: CASE EVENT DATE: 20200228
